FAERS Safety Report 20481820 (Version 1)
Quarter: 2022Q1

REPORT INFORMATION
  Report Type: Spontaneous
  Country: NL (occurrence: NL)
  Receive Date: 20220216
  Receipt Date: 20220216
  Transmission Date: 20220423
  Serious: Yes (Other)
  Sender: FDA-Public Use
  Company Number: None

PATIENT
  Sex: Female

DRUGS (2)
  1. TERBINAFINE [Suspect]
     Active Substance: TERBINAFINE
     Indication: Product used for unknown indication
     Dosage: 250 MILLIGRAM, QD (1X DAILY 1 TABLET)
     Dates: start: 20211020, end: 20211127
  2. HYDROCHLOROTHIAZIDE [Concomitant]
     Active Substance: HYDROCHLOROTHIAZIDE
     Dosage: 12.5 MILLIGRAM (TABLET, 12,5 MG (MILLIGRAM))

REACTIONS (3)
  - Chest injury [Unknown]
  - Fall [Recovered/Resolved]
  - Dizziness [Recovered/Resolved]
